FAERS Safety Report 5950871-2 (Version None)
Quarter: 2008Q4

REPORT INFORMATION
  Report Type: 
  Country: None (occurrence: None)
  Receive Date: 20081110
  Receipt Date: 20081027
  Transmission Date: 20090506
  Serious: Yes (Hospitalization, Other)
  Sender: FDA-Public Use
  Company Number: THYR-1000067

PATIENT
  Age: 67 Year
  Sex: Female
  Weight: 75 kg

DRUGS (2)
  1. THYROGEN [Suspect]
     Indication: DIAGNOSTIC PROCEDURE
     Dosage: ONCE, INTRAMUSCULAR
     Route: 030
     Dates: start: 20080616, end: 20080616
  2. ARIMIDEX [Concomitant]

REACTIONS (2)
  - SINOATRIAL BLOCK [None]
  - SINUS BRADYCARDIA [None]
